FAERS Safety Report 8233334-3 (Version None)
Quarter: 2012Q1

REPORT INFORMATION
  Report Type: 
  Country: None (occurrence: None)
  Receive Date: 20120323
  Receipt Date: 20120323
  Transmission Date: 20120608
  Serious: No
  Sender: FDA-Public Use
  Company Number: None

PATIENT
  Sex: Female
  Weight: 69.4003 kg

DRUGS (1)
  1. ADCIRCA [Suspect]
     Indication: PULMONARY HYPERTENSION
     Dosage: 40MG DAILY PO
     Route: 048
     Dates: start: 20120316, end: 20120323

REACTIONS (5)
  - PANIC ATTACK [None]
  - DIARRHOEA [None]
  - PALPITATIONS [None]
  - ANXIETY [None]
  - HEADACHE [None]
